FAERS Safety Report 8462388-4 (Version None)
Quarter: 2012Q2

REPORT INFORMATION
  Report Type: 
  Country: None (occurrence: None)
  Receive Date: 20120625
  Receipt Date: 20120618
  Transmission Date: 20120825
  Serious: Yes (Hospitalization, Other)
  Sender: FDA-Public Use
  Company Number: US-BAYER-2012-061606

PATIENT
  Age: 41 Year
  Sex: Female
  Weight: 72.7 kg

DRUGS (7)
  1. LEVOXYL [Concomitant]
     Dosage: UNK
  2. VICODIN [Concomitant]
     Dosage: UNK UNK, PRN
  3. AMERGE [Concomitant]
     Dosage: UNK
     Dates: start: 20060811
  4. STADOL [Concomitant]
     Dosage: 2 MG,X 1
     Dates: start: 20060811
  5. YASMIN [Suspect]
  6. TOPAMAX [Concomitant]
     Dosage: UNK
  7. PHENERGAN [Concomitant]
     Dosage: 25 MG, UNK
     Route: 030
     Dates: start: 20060811

REACTIONS (2)
  - PULMONARY EMBOLISM [None]
  - DEEP VEIN THROMBOSIS [None]
